FAERS Safety Report 8857733 (Version 1)
Quarter: 2012Q4

REPORT INFORMATION
  Report Type: 
  Country: US (occurrence: US)
  Receive Date: 20121024
  Receipt Date: 20121024
  Transmission Date: 20130627
  Serious: Yes (Disabling)
  Sender: FDA-Public Use
  Company Number: US-PFIZER INC-2012261973

PATIENT
  Age: 53 Year
  Sex: Female
  Weight: 163 kg

DRUGS (3)
  1. PREMARIN [Suspect]
     Indication: HORMONE REPLACEMENT THERAPY
     Dosage: 0.3 mg, 1x/day
     Route: 048
  2. CALAN [Suspect]
     Indication: HYPERTENSION
     Dosage: 120 mg, 1x/day
     Route: 048
  3. HYDROCHLOROTHIAZIDE [Concomitant]
     Dosage: 50 mg, 1x/day
     Route: 048

REACTIONS (3)
  - Arthropathy [Unknown]
  - Arthralgia [Unknown]
  - Insomnia [Unknown]
